FAERS Safety Report 5852518-2 (Version None)
Quarter: 2008Q3

REPORT INFORMATION
  Report Type: 
  Country: None (occurrence: None)
  Receive Date: 20080819
  Receipt Date: 20080808
  Transmission Date: 20090109
  Serious: Yes (Hospitalization, Other)
  Sender: FDA-Public Use
  Company Number: 2008BI015714

PATIENT
  Age: 39 Year
  Sex: Female
  Weight: 95.2554 kg

DRUGS (2)
  1. AVONEX [Suspect]
     Indication: MULTIPLE SCLEROSIS
     Dosage: 30 UG; QW; IM; 30 UG; QW; IM
     Route: 030
     Dates: start: 19990101, end: 20020101
  2. AVONEX [Suspect]
     Indication: MULTIPLE SCLEROSIS
     Dosage: 30 UG; QW; IM; 30 UG; QW; IM
     Route: 030
     Dates: start: 20080101, end: 20080101

REACTIONS (6)
  - ARTERIOSPASM CORONARY [None]
  - DIABETES MELLITUS [None]
  - MYOCARDIAL INFARCTION [None]
  - PAIN [None]
  - SARCOIDOSIS [None]
  - SYNCOPE [None]
